FAERS Safety Report 4263127-3 (Version None)
Quarter: 2004Q1

REPORT INFORMATION
  Report Type: 
  Country: None (occurrence: None)
  Receive Date: 20040105
  Receipt Date: 20030806
  Transmission Date: 20041129
  Serious: Yes (Other)
  Sender: FDA-Public Use
  Company Number: JP-BRISTOL-MYERS SQUIBB COMPANY-12347316

PATIENT
  Age: 57 Year
  Sex: Female

DRUGS (2)
  1. MITOMYCIN [Suspect]
     Indication: OVARIAN CANCER
     Route: 033
     Dates: start: 20030508, end: 20030508
  2. CARBOPLATIN [Suspect]
     Indication: OVARIAN CANCER
     Route: 034
     Dates: start: 20030508, end: 20030508

REACTIONS (5)
  - ANAPHYLACTIC SHOCK [None]
  - BLOOD PRESSURE DECREASED [None]
  - OVARIAN CANCER [None]
  - RECURRENT CANCER [None]
  - TYPE IV HYPERSENSITIVITY REACTION [None]
